FAERS Safety Report 8992023 (Version 1)
Quarter: 2012Q4

REPORT INFORMATION
  Report Type: 
  Country: US (occurrence: US)
  Receive Date: 20121231
  Receipt Date: 20121231
  Transmission Date: 20130627
  Serious: Yes (Hospitalization, Other)
  Sender: FDA-Public Use
  Company Number: CHPA2012US025495

PATIENT
  Age: 76 Year
  Sex: Female

DRUGS (1)
  1. EXCEDRIN TENSION HEADACHE [Suspect]
     Indication: MYALGIA
     Dosage: Unk, as needed
     Route: 048

REACTIONS (2)
  - Hip fracture [Recovered/Resolved]
  - Infection [Recovered/Resolved]
